FAERS Safety Report 24443801 (Version 2)
Quarter: 2024Q4

REPORT INFORMATION
  Report Type: Report from Study
  Country: US (occurrence: US)
  Receive Date: 20241016
  Receipt Date: 20241017
  Transmission Date: 20250115
  Serious: No
  Sender: ROCHE
  Company Number: US-ROCHE-2167211

PATIENT
  Age: 24 Year
  Sex: Male

DRUGS (2)
  1. RITUXAN [Suspect]
     Active Substance: RITUXIMAB
     Indication: Encephalitis
     Dosage: THEN EVERY 6 MONTH, INFUSION SCHEDULED FOR 20/AUG/2018, 16/FEB/2022?STRENGTH: 500MG/50ML?ON DAY 1 AN
     Route: 041
     Dates: start: 20180214
  2. RITUXAN [Suspect]
     Active Substance: RITUXIMAB
     Indication: Encephalomyelitis

REACTIONS (2)
  - Off label use [Unknown]
  - No adverse event [Unknown]
